FAERS Safety Report 4685286-0 (Version None)
Quarter: 2005Q2

REPORT INFORMATION
  Report Type: 
  Country: None (occurrence: None)
  Receive Date: 20050608
  Receipt Date: 20050316
  Transmission Date: 20051028
  Serious: Yes (Hospitalization)
  Sender: FDA-Public Use
  Company Number: IL-JNJFOC-20050600437

PATIENT
  Age: 55 Year
  Sex: Male

DRUGS (2)
  1. TOPAMAX [Suspect]
     Indication: EPILEPSY
     Dosage: PATIENT RECEIVED THERAPY FOR 2-3 MONTHS
     Route: 065
  2. LAMOTRIGINE [Concomitant]

REACTIONS (2)
  - RASH [None]
  - VASCULITIS [None]
